FAERS Safety Report 4277705-9 (Version None)
Quarter: 2004Q1

REPORT INFORMATION
  Report Type: 
  Country: None (occurrence: None)
  Receive Date: 20040123
  Receipt Date: 20040114
  Transmission Date: 20041129
  Serious: Yes (Hospitalization)
  Sender: FDA-Public Use
  Company Number: PHBS2004FR00848

PATIENT
  Age: 37 Year
  Sex: Male

DRUGS (5)
  1. CYCLOSPORINE [Suspect]
     Indication: RENAL TRANSPLANT
     Route: 065
  2. ANTITHYMOCYTE IMMUNOGLOBULIN [Concomitant]
  3. AZATHIOPRINE [Suspect]
  4. PREDNISONE [Suspect]
  5. MYCOPHENOLATE SODIUM [Suspect]

REACTIONS (9)
  - BLOOD CREATININE INCREASED [None]
  - GRAFT DYSFUNCTION [None]
  - HUMAN POLYOMAVIRUS INFECTION [None]
  - HYDRONEPHROSIS [None]
  - NEPHROPATHY [None]
  - RENAL SURGERY [None]
  - TUBULOINTERSTITIAL NEPHRITIS [None]
  - URETERIC STENOSIS [None]
  - URINE ANALYSIS ABNORMAL [None]
